FAERS Safety Report 8272210-7 (Version None)
Quarter: 2012Q2

REPORT INFORMATION
  Report Type: 
  Country: None (occurrence: None)
  Receive Date: 20120410
  Receipt Date: 20120403
  Transmission Date: 20120825
  Serious: Yes (Life-Threatening, Hospitalization, Other)
  Sender: FDA-Public Use
  Company Number: JP-ASTRAZENECA-2012SE14617

PATIENT
  Age: 26870 Day
  Sex: Female
  Weight: 46.4 kg

DRUGS (9)
  1. SEROQUEL [Suspect]
     Indication: DEMENTIA WITH LEWY BODIES
     Route: 048
     Dates: end: 20120206
  2. SEROQUEL [Suspect]
     Route: 048
     Dates: start: 20120207, end: 20120207
  3. YOKUKAN-SAN [Suspect]
     Indication: HYPOKALAEMIA
     Route: 048
     Dates: end: 20120206
  4. YOKUKAN-SAN [Suspect]
     Route: 048
     Dates: start: 20120207, end: 20120207
  5. MENEST [Concomitant]
     Indication: DEMENTIA WITH LEWY BODIES
     Dates: start: 20110620, end: 20120207
  6. SELEGILINE HCL [Concomitant]
     Indication: DEMENTIA WITH LEWY BODIES
     Dates: start: 20110913, end: 20111006
  7. GLUCONSAN K [Concomitant]
     Indication: HYPOKALAEMIA
     Dates: start: 20100913, end: 20120207
  8. LAXOBERON [Concomitant]
     Indication: CONSTIPATION
     Dates: start: 20091224
  9. ARICEPT [Concomitant]
     Indication: DEMENTIA WITH LEWY BODIES
     Dates: end: 20111014

REACTIONS (4)
  - NEUROLEPTIC MALIGNANT SYNDROME [None]
  - HYPOKALAEMIA [None]
  - OFF LABEL USE [None]
  - CONSTIPATION [None]
